FAERS Safety Report 26162997 (Version 1)
Quarter: 2025Q4

REPORT INFORMATION
  Report Type: Spontaneous
  Country: US (occurrence: None)
  Receive Date: 20251215
  Receipt Date: 20251215
  Transmission Date: 20260117
  Serious: No
  Sender: FDA-CTU
  Company Number: None

PATIENT
  Age: 55 Year
  Sex: Female

DRUGS (1)
  1. CABENUVA [Suspect]
     Active Substance: CABOTEGRAVIR\RILPIVIRINE
     Indication: HIV infection
     Dosage: OTHER FREQUENCY : EVERY 60 DAYS;
     Route: 030
     Dates: start: 20250416, end: 20251215

REACTIONS (3)
  - Pruritus [None]
  - Pain in extremity [None]
  - Injection related reaction [None]

NARRATIVE: CASE EVENT DATE: 20251115
